FAERS Safety Report 25611350 (Version 1)
Quarter: 2025Q3

REPORT INFORMATION
  Report Type: Spontaneous
  Country: US (occurrence: US)
  Receive Date: 20250728
  Receipt Date: 20250728
  Transmission Date: 20251020
  Serious: Yes (Other)
  Sender: DR REDDYS
  Company Number: None

PATIENT
  Age: 66 Year
  Sex: Male

DRUGS (3)
  1. PROPOFOL [Suspect]
     Active Substance: PROPOFOL
     Indication: Anaesthesia
  2. PROPOFOL [Suspect]
     Active Substance: PROPOFOL
     Indication: Sedation
  3. ETOMIDATE [Suspect]
     Active Substance: ETOMIDATE
     Indication: Anaesthesia

REACTIONS (1)
  - Catatonia [Recovered/Resolved]
